FAERS Safety Report 5857511-1 (Version None)
Quarter: 2008Q3

REPORT INFORMATION
  Report Type: 
  Country: None (occurrence: None)
  Receive Date: 20080825
  Receipt Date: 20080825
  Transmission Date: 20090109
  Serious: Yes (Hospitalization)
  Sender: FDA-Public Use
  Company Number: None

PATIENT
  Age: 51 Year
  Sex: Female
  Weight: 68.0396 kg

DRUGS (1)
  1. SULFAMETHOXAZOLE/TRIMETHOPRIM 800/160 MG INTERPHARM/LANNETT [Suspect]
     Indication: STAPHYLOCOCCAL INFECTION
     Dosage: 2 TABS TWICE DAILY PO
     Route: 048
     Dates: start: 20080725, end: 20080802

REACTIONS (3)
  - CHILLS [None]
  - PLATELET COUNT DECREASED [None]
  - WHITE BLOOD CELL COUNT DECREASED [None]
